FAERS Safety Report 12757575 (Version 1)
Quarter: 2016Q3

REPORT INFORMATION
  Report Type: Spontaneous
  Country: US (occurrence: US)
  Receive Date: 20160919
  Receipt Date: 20160919
  Transmission Date: 20161109
  Serious: No
  Sender: FDA-Public Use
  Company Number: US-ASTRAZENECA-2016SE92482

PATIENT
  Age: 575 Month
  Sex: Female
  Weight: 65.8 kg

DRUGS (5)
  1. ANASTRAZOLE [Suspect]
     Active Substance: ANASTROZOLE
     Indication: BREAST CANCER FEMALE
     Route: 048
     Dates: start: 20160420, end: 20160817
  2. LEVOTHYROXINE. [Concomitant]
     Active Substance: LEVOTHYROXINE
     Indication: THYROID DISORDER
     Route: 048
     Dates: start: 2006
  3. CELEXA [Concomitant]
     Active Substance: CITALOPRAM HYDROBROMIDE
     Indication: ANXIETY
     Route: 048
     Dates: start: 201401
  4. TAMOXIFEN [Suspect]
     Active Substance: TAMOXIFEN
     Indication: BREAST CANCER FEMALE
     Dosage: DAILY
     Route: 048
     Dates: start: 201412, end: 201603
  5. CELEXA [Concomitant]
     Active Substance: CITALOPRAM HYDROBROMIDE
     Indication: DEPRESSION
     Route: 048
     Dates: start: 201401

REACTIONS (10)
  - Pain in extremity [Recovering/Resolving]
  - Decreased interest [Unknown]
  - Musculoskeletal pain [Recovering/Resolving]
  - Paraesthesia [Unknown]
  - Headache [Unknown]
  - Fatigue [Unknown]
  - Arthralgia [Recovering/Resolving]
  - Disturbance in attention [Unknown]
  - Nausea [Unknown]
  - Depression [Unknown]

NARRATIVE: CASE EVENT DATE: 201606
